FAERS Safety Report 6409180-X (Version None)
Quarter: 2009Q4

REPORT INFORMATION
  Report Type: 
  Country: None (occurrence: None)
  Receive Date: 20091021
  Receipt Date: 20091012
  Transmission Date: 20100525
  Serious: Yes (Other)
  Sender: FDA-Public Use
  Company Number: PHHY2009GB33552

PATIENT
  Age: 58 Year
  Sex: Female

DRUGS (1)
  1. FEMARA [Suspect]
     Route: 048

REACTIONS (5)
  - ANXIETY [None]
  - BREAST PAIN [None]
  - MALIGNANT NEOPLASM PROGRESSION [None]
  - PALPITATIONS [None]
  - TACHYCARDIA [None]
